FAERS Safety Report 10486172 (Version 1)
Quarter: 2014Q3

REPORT INFORMATION
  Report Type: Spontaneous
  Country: US (occurrence: None)
  Receive Date: 20140930
  Receipt Date: 20140930
  Transmission Date: 20150326
  Serious: Yes (Other)
  Sender: FDA-Public Use
  Company Number: None

PATIENT
  Age: 75 Year
  Sex: Female
  Weight: 99.34 kg

DRUGS (1)
  1. AMITIZA [Suspect]
     Active Substance: LUBIPROSTONE
     Indication: CONSTIPATION
     Dates: start: 20140421, end: 20140427

REACTIONS (6)
  - Headache [None]
  - Feeling abnormal [None]
  - Drug ineffective [None]
  - Nausea [None]
  - Nightmare [None]
  - Palpitations [None]

NARRATIVE: CASE EVENT DATE: 20140421
